FAERS Safety Report 4640561-0 (Version None)
Quarter: 2005Q2

REPORT INFORMATION
  Report Type: 
  Country: None (occurrence: None)
  Receive Date: 20050321
  Receipt Date: 20040426
  Transmission Date: 20051028
  Serious: Yes (Other)
  Sender: FDA-Public Use
  Company Number: 2004-04-1666

PATIENT
  Age: 50 Year
  Sex: Male
  Weight: 90.7194 kg

DRUGS (8)
  1. PEG-INTRON [Suspect]
     Indication: HEPATITIS C
     Dosage: 150 MCG QWK SUBCUTANEOUS
     Route: 058
     Dates: start: 20030801, end: 20040409
  2. REBETOL [Suspect]
     Indication: HEPATITIS C
     Dosage: 600 MG QD ORAL
     Route: 048
     Dates: start: 20030801, end: 20040409
  3. INSULIN [Concomitant]
  4. UNIVASC [Concomitant]
  5. ZETIA [Concomitant]
  6. ATENOLOL [Concomitant]
  7. VITAMIN E [Concomitant]
  8. CHROMIUM [Concomitant]

REACTIONS (5)
  - ANAEMIA [None]
  - DEPRESSION [None]
  - INSOMNIA [None]
  - RETINOPATHY [None]
  - WEIGHT DECREASED [None]
